FAERS Safety Report 19894096 (Version 1)
Quarter: 2021Q3

REPORT INFORMATION
  Report Type: Spontaneous
  Country: US (occurrence: US)
  Receive Date: 20210928
  Receipt Date: 20210928
  Transmission Date: 20211014
  Serious: Yes (Disabling)
  Sender: FDA-Public Use
  Company Number: None

PATIENT
  Age: 48 Year
  Sex: Male
  Weight: 103.5 kg

DRUGS (11)
  1. DESVENLAFAXINE. [Concomitant]
     Active Substance: DESVENLAFAXINE
  2. ATOMOXETINE. [Concomitant]
     Active Substance: ATOMOXETINE HYDROCHLORIDE
  3. GUAIFENESIN. [Concomitant]
     Active Substance: GUAIFENESIN
  4. LAMOTRIGINE 150MG TABLET NDC: 51672?4132?04 COMMON BRANDS: LAMICTAL [Suspect]
     Active Substance: LAMOTRIGINE
     Indication: BIPOLAR DISORDER
     Dosage: ?          QUANTITY:1 TABLET(S);?
     Route: 048
     Dates: start: 20210804, end: 20210928
  5. PROBIOTIC [Concomitant]
     Active Substance: PROBIOTICS NOS
  6. OMEPRAZOLE. [Concomitant]
     Active Substance: OMEPRAZOLE
  7. LORATIDINE [Concomitant]
     Active Substance: LORATADINE
  8. BUPROPION. [Concomitant]
     Active Substance: BUPROPION
  9. MULTIVITAMIN (ONE?A?DAY MEN^S) [Concomitant]
  10. PSEUDOEPHEDRINE. [Concomitant]
     Active Substance: PSEUDOEPHEDRINE HYDROCHLORIDE
  11. VITAMIN D [Concomitant]
     Active Substance: VITAMIN D NOS

REACTIONS (8)
  - Suicidal ideation [None]
  - Manufacturing issue [None]
  - Disturbance in attention [None]
  - Panic attack [None]
  - Lethargy [None]
  - Irritability [None]
  - Mood swings [None]
  - Impaired work ability [None]

NARRATIVE: CASE EVENT DATE: 20210804
